FAERS Safety Report 9213203 (Version 1)
Quarter: 2013Q2

REPORT INFORMATION
  Report Type: Spontaneous
  Country: US (occurrence: None)
  Receive Date: 20130403
  Receipt Date: 20130403
  Transmission Date: 20140414
  Serious: Yes (Other)
  Sender: FDA-Public Use
  Company Number: None

PATIENT
  Age: 27 Year
  Sex: Female

DRUGS (1)
  1. CREST PRO HEALTH ORAL RINSE MULTI PROTECTION ALCOHOL FREE PROCTER AND GAMBLE [Suspect]
     Dates: start: 20121221, end: 20130401

REACTIONS (3)
  - Dysgeusia [None]
  - Tongue discolouration [None]
  - Tooth discolouration [None]
